FAERS Safety Report 6435167-7 (Version None)
Quarter: 2009Q4

REPORT INFORMATION
  Report Type: 
  Country: None (occurrence: None)
  Receive Date: 20091110
  Receipt Date: 20091001
  Transmission Date: 20100525
  Serious: Yes (Death)
  Sender: FDA-Public Use
  Company Number: US-BRISTOL-MYERS SQUIBB COMPANY-14793848

PATIENT
  Age: 64 Year
  Sex: Female

DRUGS (4)
  1. IXEMPRA KIT [Suspect]
     Indication: BREAST CANCER
     Dosage: IXEMPRA IV; MULTIPLE LINES OF THERAPY
     Route: 042
     Dates: start: 20090916
  2. XELODA [Suspect]
     Indication: BREAST CANCER
     Dosage: BID IN 2 WEEKS
     Dates: start: 20090916
  3. DIPHENHYDRAMINE [Concomitant]
     Indication: PREMEDICATION
  4. CIMETIDINE [Concomitant]
     Indication: PREMEDICATION

REACTIONS (1)
  - MALIGNANT NEOPLASM PROGRESSION [None]
